FAERS Safety Report 22211002 (Version 1)
Quarter: 2023Q2

REPORT INFORMATION
  Report Type: Spontaneous
  Country: CA (occurrence: None)
  Receive Date: 20230414
  Receipt Date: 20230414
  Transmission Date: 20230722
  Serious: Yes (Other)
  Sender: FDA-Public Use
  Company Number: CA-ROCHE-3331328

PATIENT
  Age: 76 Year
  Sex: Male
  Weight: 64 kg

DRUGS (1)
  1. PIRFENIDONE [Suspect]
     Active Substance: PIRFENIDONE
     Indication: Product used for unknown indication
     Route: 048

REACTIONS (8)
  - Arteriosclerosis coronary artery [Recovered/Resolved]
  - Bronchiectasis [Recovered/Resolved]
  - Forced vital capacity decreased [Recovered/Resolved]
  - Interstitial lung disease [Recovered/Resolved]
  - Lung diffusion disorder [Recovered/Resolved]
  - Lymphadenopathy [Recovered/Resolved]
  - Pulmonary mass [Recovered/Resolved]
  - Renal dysplasia [Recovered/Resolved]
